FAERS Safety Report 16944494 (Version 2)
Quarter: 2019Q4

REPORT INFORMATION
  Report Type: Report from Study
  Country: DE (occurrence: DE)
  Receive Date: 20191022
  Receipt Date: 20191118
  Transmission Date: 20200122
  Serious: Yes (Hospitalization)
  Sender: FDA-Public Use
  Company Number: PHHO2015DE004942

PATIENT
  Age: 66 Year
  Sex: Male
  Weight: 90 kg

DRUGS (7)
  1. TORASEMID [Concomitant]
     Active Substance: TORSEMIDE
     Indication: OEDEMA PERIPHERAL
     Dosage: 10 MG, QD
     Route: 065
     Dates: start: 20100303
  2. PHOSPHATE [Concomitant]
     Active Substance: UNSPECIFIED INGREDIENT
     Indication: HYPERPHOSPHATAEMIA
     Dosage: 2 DF, TID
     Route: 065
     Dates: start: 20100304
  3. ALLOPURINOL. [Concomitant]
     Active Substance: ALLOPURINOL
     Indication: HYPERURICAEMIA
     Dosage: 100 MG, QD
     Route: 065
  4. PANTOPRAZOL [Concomitant]
     Active Substance: PANTOPRAZOLE SODIUM
     Indication: GASTROOESOPHAGEAL REFLUX DISEASE
     Dosage: 40 MG, QD
     Route: 065
  5. NILOTINIB [Suspect]
     Active Substance: NILOTINIB
     Indication: GASTROINTESTINAL CANCER METASTATIC
     Dosage: 400 MG, BID
     Route: 048
     Dates: start: 20090205, end: 20101114
  6. CANDESARTAN. [Concomitant]
     Active Substance: CANDESARTAN
     Indication: HYPERTENSION
     Dosage: 16 MG, QD
     Route: 065
     Dates: start: 20110513
  7. NILOTINIB [Suspect]
     Active Substance: NILOTINIB
     Dosage: 400 UNK
     Route: 048
     Dates: start: 20101119, end: 20150918

REACTIONS (2)
  - Carotid artery stenosis [Recovered/Resolved]
  - Neuritis [Recovered/Resolved]

NARRATIVE: CASE EVENT DATE: 20150112
